FAERS Safety Report 9151480 (Version 2)
Quarter: 2013Q1

REPORT INFORMATION
  Report Type: Spontaneous
  Country: US (occurrence: US)
  Receive Date: 20130308
  Receipt Date: 20130315
  Transmission Date: 20140127
  Serious: Yes (Hospitalization)
  Sender: FDA-Public Use
  Company Number: US-ROCHE-1199581

PATIENT
  Age: 47 Year
  Sex: Male

DRUGS (7)
  1. XOLAIR [Suspect]
     Indication: PRODUCT USED FOR UNKNOWN INDICATION
     Route: 065
  2. PREDNISONE [Concomitant]
  3. THEOPHYLLIN [Concomitant]
  4. ACCOLATE [Concomitant]
  5. SEREVENT [Concomitant]
  6. PROVENTIL [Concomitant]
  7. ALBUTEROL [Concomitant]

REACTIONS (3)
  - Asthma [Recovered/Resolved]
  - Fatigue [Unknown]
  - Dyspnoea [Unknown]
